FAERS Safety Report 9644576 (Version 1)
Quarter: 2013Q4

REPORT INFORMATION
  Report Type: Spontaneous
  Country: JP (occurrence: JP)
  Receive Date: 20131025
  Receipt Date: 20131025
  Transmission Date: 20140711
  Serious: Yes (Other)
  Sender: FDA-Public Use
  Company Number: JP-AMGEN-JPNSP2013075506

PATIENT
  Age: 86 Year
  Sex: Female
  Weight: 46 kg

DRUGS (1)
  1. PRALIA [Suspect]
     Indication: OSTEOPOROSIS
     Dosage: 60 MG, UNK
     Route: 058
     Dates: start: 20131017, end: 20131017

REACTIONS (2)
  - Neurogenic shock [Recovered/Resolved]
  - Blood pressure decreased [Recovered/Resolved]
